FAERS Safety Report 8077715-X (Version None)
Quarter: 2012Q1

REPORT INFORMATION
  Report Type: 
  Country: None (occurrence: None)
  Receive Date: 20120127
  Receipt Date: 20120120
  Transmission Date: 20120608
  Serious: Yes (Hospitalization)
  Sender: FDA-Public Use
  Company Number: DE-US-EMD SERONO, INC.-7098320

PATIENT
  Age: 46 Year
  Sex: Female

DRUGS (5)
  1. REBIF [Suspect]
     Route: 058
     Dates: start: 20111124, end: 20111222
  2. UNSPECIFIED MEDICATION [Concomitant]
     Indication: RESTLESS LEGS SYNDROME
  3. REBIF [Suspect]
     Indication: MULTIPLE SCLEROSIS
     Route: 058
     Dates: start: 20040101, end: 20111101
  4. REBIF [Suspect]
     Route: 058
     Dates: start: 20111224
  5. VALOXAN (AGOMELATINE) [Concomitant]
     Indication: DEPRESSION

REACTIONS (2)
  - MUSCLE SPASTICITY [None]
  - HEPATITIS E [None]
